FAERS Safety Report 6657304-1 (Version None)
Quarter: 2010Q1

REPORT INFORMATION
  Report Type: 
  Country: None (occurrence: None)
  Receive Date: 20100330
  Receipt Date: 20100325
  Transmission Date: 20100710
  Serious: Yes (Hospitalization)
  Sender: FDA-Public Use
  Company Number: US-BRISTOL-MYERS SQUIBB COMPANY-14953012

PATIENT
  Age: 51 Year
  Sex: Female
  Weight: 56 kg

DRUGS (12)
  1. ORENCIA [Suspect]
     Indication: RHEUMATOID ARTHRITIS
     Dosage: INTERRUPTED-MAR09;RESTARTED-MAY09; INTERRUPTED-SEP09;RESTARTED-18DEC09
     Route: 042
     Dates: start: 20080514
  2. SYNTHROID [Concomitant]
  3. METHOTREXATE [Concomitant]
     Dosage: 1DF=.7[UNIT NI]
  4. HUMALOG [Concomitant]
  5. FOLIC ACID [Concomitant]
  6. CYMBALTA [Concomitant]
  7. PRAVASTATIN SODIUM [Concomitant]
  8. ASPIRIN [Concomitant]
  9. FISH OIL [Concomitant]
  10. LEVOXYL [Concomitant]
  11. OMEPRAZOLE [Concomitant]
  12. OXYCONTIN [Concomitant]

REACTIONS (3)
  - DRUG INEFFECTIVE [None]
  - OSTEOMYELITIS [None]
  - RHEUMATOID NODULE [None]
